FAERS Safety Report 19377083 (Version 1)
Quarter: 2021Q2

REPORT INFORMATION
  Report Type: Spontaneous
  Country: US (occurrence: US)
  Receive Date: 20210604
  Receipt Date: 20210604
  Transmission Date: 20210717
  Serious: No
  Sender: FDA-Public Use
  Company Number: US-PERRIGO-21US005982

PATIENT
  Age: 89 Year
  Sex: Female
  Weight: 45.35 kg

DRUGS (2)
  1. NORVASC [Concomitant]
     Active Substance: AMLODIPINE BESYLATE
     Indication: HYPERTENSION
     Dosage: UNK
     Route: 065
  2. DICLOFENAC SODIUM. [Suspect]
     Active Substance: DICLOFENAC SODIUM
     Indication: ARTHRALGIA
     Dosage: 1 APPLICATION, 2 TO 3 TIMES DAILY, PRN
     Route: 061
     Dates: start: 2020, end: 20210501

REACTIONS (4)
  - Product administered at inappropriate site [Recovered/Resolved]
  - Ear discomfort [Recovered/Resolved]
  - Drug ineffective [Unknown]
  - Wrong technique in product usage process [Recovered/Resolved]

NARRATIVE: CASE EVENT DATE: 2020
